FAERS Safety Report 7582241-8 (Version None)
Quarter: 2011Q2

REPORT INFORMATION
  Report Type: 
  Country: None (occurrence: None)
  Receive Date: 20110527
  Receipt Date: 20110211
  Transmission Date: 20111010
  Serious: Yes (Life-Threatening, Hospitalization)
  Sender: FDA-Public Use
  Company Number: US201102000876

PATIENT
  Age: 58 Year
  Sex: Female

DRUGS (2)
  1. BYETTA [Suspect]
     Indication: TYPE 2 DIABETES MELLITUS
     Dosage: 5 UG, SUBCUTANEOUS, 10 UG, SUBCUTANEOUS
     Route: 058
  2. JANUVIA [Concomitant]

REACTIONS (4)
  - PANCREATITIS [None]
  - ABDOMINAL PAIN [None]
  - MALAISE [None]
  - WEIGHT DECREASED [None]
